FAERS Safety Report 16778447 (Version 2)
Quarter: 2020Q1

REPORT INFORMATION
  Report Type: Report from Study
  Country: DE (occurrence: DE)
  Receive Date: 20190906
  Receipt Date: 20200218
  Transmission Date: 20200409
  Serious: Yes (Hospitalization)
  Sender: FDA-Public Use
  Company Number: PHHY2019DE205812

PATIENT
  Age: 46 Year
  Sex: Male
  Weight: 90 kg

DRUGS (1)
  1. COSENTYX [Suspect]
     Active Substance: SECUKINUMAB
     Indication: PSORIASIS
     Dosage: 300 MG, UNK
     Route: 058
     Dates: start: 20190220, end: 201908

REACTIONS (5)
  - Abdominal pain [Recovered/Resolved]
  - Blood bilirubin increased [Unknown]
  - Blood glucose increased [Unknown]
  - Gastritis haemorrhagic [Recovered/Resolved]
  - Asthma [Not Recovered/Not Resolved]

NARRATIVE: CASE EVENT DATE: 20190604
